FAERS Safety Report 19203399 (Version 2)
Quarter: 2021Q4

REPORT INFORMATION
  Report Type: Spontaneous
  Country: IN (occurrence: IN)
  Receive Date: 20210503
  Receipt Date: 20211208
  Transmission Date: 20220304
  Serious: Yes (Hospitalization, Other)
  Sender: FDA-Public Use
  Company Number: IN-EPICPHARMA-IN-2021EPCLIT00476

PATIENT
  Age: 51 Year
  Sex: Female
  Weight: 72 kg

DRUGS (13)
  1. PHENYTOIN [Suspect]
     Active Substance: PHENYTOIN
     Indication: Generalised tonic-clonic seizure
     Route: 040
  2. PHENYTOIN [Suspect]
     Active Substance: PHENYTOIN
     Dosage: AT A RATE OF 46.6 MG/MIN OVER 15 MINUTES
     Route: 065
  3. PHENYTOIN [Suspect]
     Active Substance: PHENYTOIN
     Dosage: AT A RATE OF 0.69 MG/MIN OVER 24 HOURS.
     Route: 065
  4. PHENYTOIN [Suspect]
     Active Substance: PHENYTOIN
     Route: 040
  5. CEFTRIAXONE [Concomitant]
     Active Substance: CEFTRIAXONE
     Indication: Generalised tonic-clonic seizure
     Route: 065
  6. GENTAMICIN [Concomitant]
     Active Substance: GENTAMICIN
     Indication: Generalised tonic-clonic seizure
     Route: 065
  7. DIAZEPAM [Concomitant]
     Active Substance: DIAZEPAM
     Indication: Generalised tonic-clonic seizure
     Route: 065
  8. DIAZEPAM [Concomitant]
     Active Substance: DIAZEPAM
     Route: 048
  9. VALPROATE SODIUM [Concomitant]
     Active Substance: VALPROATE SODIUM
     Indication: Generalised tonic-clonic seizure
     Route: 048
  10. CYANOCOBALAMIN [Concomitant]
     Active Substance: CYANOCOBALAMIN
     Indication: Generalised tonic-clonic seizure
     Dosage: 200 MICRO GRAM
     Route: 030
  11. RANITIDINE [Concomitant]
     Active Substance: RANITIDINE
     Indication: Generalised tonic-clonic seizure
     Route: 065
  12. DEXTROSE [Concomitant]
     Active Substance: DEXTROSE
     Indication: Generalised tonic-clonic seizure
     Route: 042
  13. SODIUM CHLORIDE [Concomitant]
     Active Substance: SODIUM CHLORIDE
     Indication: Product used for unknown indication
     Route: 042

REACTIONS (5)
  - Seizure [Recovered/Resolved]
  - Blood disorder [Recovered/Resolved]
  - Hypotension [Recovered/Resolved]
  - Dizziness [Recovered/Resolved]
  - Overdose [Unknown]
